FAERS Safety Report 25599780 (Version 1)
Quarter: 2025Q3

REPORT INFORMATION
  Report Type: Spontaneous
  Country: US (occurrence: US)
  Receive Date: 20250724
  Receipt Date: 20250724
  Transmission Date: 20251020
  Serious: Yes (Hospitalization)
  Sender: AUROBINDO
  Company Number: US-AUROBINDO-AUR-APL-2025-036762

PATIENT
  Age: 75 Year
  Sex: Female

DRUGS (3)
  1. ALENDRONATE SODIUM [Suspect]
     Active Substance: ALENDRONATE SODIUM
     Indication: Osteoporosis
     Dosage: 70 MILLIGRAM, EVERY WEEK
     Route: 048
     Dates: start: 20250518
  2. VITAMIN D [Concomitant]
     Active Substance: VITAMIN D NOS
     Indication: Product used for unknown indication
     Route: 065
  3. CALCIUM [Concomitant]
     Active Substance: CALCIUM
     Indication: Product used for unknown indication
     Route: 065

REACTIONS (5)
  - Spinal pain [Not Recovered/Not Resolved]
  - Inflammation [Unknown]
  - Musculoskeletal pain [Not Recovered/Not Resolved]
  - Musculoskeletal stiffness [Unknown]
  - Pyrexia [Unknown]

NARRATIVE: CASE EVENT DATE: 20250704
